FAERS Safety Report 6441136-3 (Version None)
Quarter: 2009Q4

REPORT INFORMATION
  Report Type: 
  Country: None (occurrence: None)
  Receive Date: 20091116
  Receipt Date: 20090909
  Transmission Date: 20100525
  Serious: No
  Sender: FDA-Public Use
  Company Number: US-BAYER-200932953NA

PATIENT
  Age: 90 Year
  Sex: Male

DRUGS (2)
  1. ULTRAVIST 370 [Suspect]
     Indication: COMPUTERISED TOMOGRAM ABDOMEN
     Dosage: TOTAL DAILY DOSE: 100 ML  UNIT DOSE: 100 ML
     Route: 042
     Dates: start: 20090905, end: 20090905
  2. UNKNOWN ORAL CONTRAST [Concomitant]
     Route: 048
     Dates: start: 20090905, end: 20090905

REACTIONS (3)
  - COUGH [None]
  - OROPHARYNGEAL DISCOMFORT [None]
  - PRURITUS [None]
